FAERS Safety Report 7911749-8 (Version None)
Quarter: 2011Q4

REPORT INFORMATION
  Report Type: 
  Country: None (occurrence: None)
  Receive Date: 20111114
  Receipt Date: 20111114
  Transmission Date: 20120403
  Serious: No
  Sender: FDA-Public Use
  Company Number: None

PATIENT
  Age: 62 Year
  Sex: Female
  Weight: 59.42 kg

DRUGS (3)
  1. BUTRANS [Suspect]
     Indication: MULTIPLE SCLEROSIS
     Dosage: 20 MCG HOUR
     Route: 062
     Dates: start: 20111107, end: 20111109
  2. BUTRANS [Suspect]
     Indication: PAIN
     Dosage: 20 MCG HOUR
     Route: 062
     Dates: start: 20111107, end: 20111109
  3. BUTRANS [Suspect]
     Indication: OSTEOARTHRITIS
     Dosage: 20 MCG HOUR
     Route: 062
     Dates: start: 20111107, end: 20111109

REACTIONS (6)
  - HEADACHE [None]
  - NAUSEA [None]
  - HALLUCINATION [None]
  - HEART RATE INCREASED [None]
  - APPLICATION SITE RASH [None]
  - DIZZINESS [None]
